FAERS Safety Report 4998625-8 (Version None)
Quarter: 2006Q2

REPORT INFORMATION
  Report Type: 
  Country: None (occurrence: None)
  Receive Date: 20060509
  Receipt Date: 20060427
  Transmission Date: 20061013
  Serious: Yes (Other)
  Sender: FDA-Public Use
  Company Number: GXKR2006BR02437

PATIENT
  Age: 40 Year
  Sex: Male
  Weight: 95 kg

DRUGS (4)
  1. MIRTAZAPINE (NGX) ( MIRTAZAPINE) 15 MG [Suspect]
     Indication: DEPRESSION
     Dosage: 15 MG, BID, ORAL
     Route: 048
     Dates: start: 20060421
  2. OMEPRAZOLE [Suspect]
  3. CLONAZEPAM [Concomitant]
  4. WARFARIN SODIUM [Concomitant]

REACTIONS (1)
  - INTERNATIONAL NORMALISED RATIO INCREASED [None]
